FAERS Safety Report 4481533-9 (Version None)
Quarter: 2004Q4

REPORT INFORMATION
  Report Type: 
  Country: None (occurrence: None)
  Receive Date: 20041021
  Receipt Date: 20041008
  Transmission Date: 20050328
  Serious: Yes (Hospitalization)
  Sender: FDA-Public Use
  Company Number: 200410527BFR

PATIENT
  Age: 51 Year
  Sex: Male

DRUGS (7)
  1. CIPROFLOXACIN HCL [Suspect]
     Indication: BRONCHITIS ACUTE
     Dosage: ORAL
     Route: 048
  2. ISOPTIN [Suspect]
     Dosage: 240 MG, TOTAL DAILY, ORAL
     Route: 048
  3. AUGMENTIN '125' [Suspect]
     Indication: BRONCHITIS ACUTE
     Dosage: ORAL
     Route: 048
  4. EUPANTOL (PANTOPRAZOLE) [Suspect]
     Dosage: 20 MG, TOTAL DAILY, ORAL
     Route: 048
     Dates: end: 20040402
  5. VOLTAREN [Suspect]
     Dosage: 150 MG, TOTAL DAILY, ORAL
     Route: 048
  6. NICARDIPINE HCL [Concomitant]
  7. COLCHICINE [Concomitant]

REACTIONS (7)
  - BLOOD IMMUNOGLOBULIN G INCREASED [None]
  - BLOOD IMMUNOGLOBULIN M ABNORMAL [None]
  - CHOLESTASIS [None]
  - DRUG INEFFECTIVE [None]
  - HEPATITIS [None]
  - PNEUMONIA MYCOPLASMAL [None]
  - RHABDOMYOLYSIS [None]
